FAERS Safety Report 13350734 (Version 3)
Quarter: 2017Q2

REPORT INFORMATION
  Report Type: Spontaneous
  Country: JP (occurrence: JP)
  Receive Date: 20170320
  Receipt Date: 20170406
  Transmission Date: 20170830
  Serious: Yes (Life-Threatening, Other)
  Sender: FDA-Public Use
  Company Number: JP-PFIZER INC-2017117532

PATIENT
  Age: 68 Year
  Sex: Female

DRUGS (4)
  1. PHENOBARBITAL. [Concomitant]
     Active Substance: PHENOBARBITAL
     Dosage: UNK
     Route: 065
     Dates: start: 20170311, end: 20170311
  2. FOSPHENYTOIN SODIUM. [Suspect]
     Active Substance: FOSPHENYTOIN SODIUM
     Dosage: 5 MG/KG, 1X/DAY
     Route: 041
     Dates: start: 20170312, end: 20170312
  3. FOSPHENYTOIN SODIUM. [Suspect]
     Active Substance: FOSPHENYTOIN SODIUM
     Dosage: 22.5 MG/KG, 1X/DAY
     Route: 041
     Dates: start: 20170311, end: 20170311
  4. CERCINE [Concomitant]
     Active Substance: DIAZEPAM
     Dosage: 2 MG, FOUR TIMES A DAY
     Route: 041
     Dates: start: 20170311, end: 20170311

REACTIONS (8)
  - Blood lactate dehydrogenase [Recovered/Resolved]
  - Hypoxic-ischaemic encephalopathy [Unknown]
  - Blood alkaline phosphatase increased [Recovered/Resolved]
  - Aspartate aminotransferase abnormal [Recovered/Resolved]
  - Alanine aminotransferase abnormal [Recovered/Resolved]
  - Multiple organ dysfunction syndrome [Unknown]
  - Blood creatine phosphokinase increased [Recovered/Resolved]
  - Fibrin D dimer increased [Recovered/Resolved]

NARRATIVE: CASE EVENT DATE: 20170313
